FAERS Safety Report 4518961-9 (Version None)
Quarter: 2004Q4

REPORT INFORMATION
  Report Type: 
  Country: None (occurrence: None)
  Receive Date: 20041201
  Receipt Date: 20041119
  Transmission Date: 20050328
  Serious: Yes (Hospitalization, Other)
  Sender: FDA-Public Use
  Company Number: 2004230289DE

PATIENT
  Sex: Female
  Weight: 60 kg

DRUGS (6)
  1. LINEZOLID TABLET    (LINEZOLID) [Suspect]
     Indication: STAPHYLOCOCCAL INFECTION
     Dosage: 1200 MG (600 MG, TWICE DAILY), ORAL
     Route: 048
     Dates: start: 20040101, end: 20040826
  2. BETA BLOCKING AGENTS (BETA BLOCKING AGENTS) [Concomitant]
  3. LEVOTHYROXINE SODIUM [Concomitant]
  4. CYANOCOBALAMIN (CYANOCOBALAMIN) [Concomitant]
  5. FOLIC ACID 9FOLIC ACID) [Concomitant]
  6. FERRUM HAUSMANN             (FERROUS FUMARATE, SACCHARATED IRON OXIDE) [Concomitant]

REACTIONS (9)
  - ANOREXIA [None]
  - ASTHENIA [None]
  - DRUG INTOLERANCE [None]
  - FOLATE DEFICIENCY [None]
  - FOOD AVERSION [None]
  - GENERAL PHYSICAL HEALTH DETERIORATION [None]
  - NAUSEA [None]
  - PANCYTOPENIA [None]
  - VITAMIN B12 DEFICIENCY [None]
